FAERS Safety Report 9516692 (Version 3)
Quarter: 2015Q1

REPORT INFORMATION
  Report Type: Spontaneous
  Country: US (occurrence: US)
  Receive Date: 20130911
  Receipt Date: 20150123
  Transmission Date: 20150721
  Serious: Yes (Hospitalization, Other)
  Sender: FDA-Public Use
  Company Number: US-009507513-1309USA003692

PATIENT
  Sex: Female

DRUGS (1)
  1. NUVARING [Suspect]
     Active Substance: ETHINYL ESTRADIOL\ETONOGESTREL
     Indication: CONTRACEPTION
     Dosage: UNK
     Route: 067
     Dates: start: 200909, end: 20110414

REACTIONS (6)
  - Upper respiratory tract infection [Unknown]
  - Pulmonary embolism [Recovered/Resolved]
  - Hyperlipidaemia [Unknown]
  - Irritable bowel syndrome [Unknown]
  - Pharyngitis streptococcal [Unknown]
  - Breast lump removal [Unknown]

NARRATIVE: CASE EVENT DATE: 201101
